FAERS Safety Report 5296786-7 (Version None)
Quarter: 2007Q2

REPORT INFORMATION
  Report Type: 
  Country: None (occurrence: None)
  Receive Date: 20070413
  Receipt Date: 20070403
  Transmission Date: 20071010
  Serious: Yes (Other)
  Sender: FDA-Public Use
  Company Number: GB-PFIZER INC-2007027315

PATIENT
  Age: 45 Year
  Sex: Female
  Weight: 68 kg

DRUGS (2)
  1. PREGABALIN [Suspect]
     Indication: NEURALGIA
     Route: 048
  2. CO-CODAMOL [Concomitant]
     Indication: PAIN
     Route: 048

REACTIONS (4)
  - DIARRHOEA [None]
  - DRUG WITHDRAWAL SYNDROME [None]
  - MALAISE [None]
  - TREMOR [None]
